FAERS Safety Report 4292485-9 (Version None)
Quarter: 2004Q1

REPORT INFORMATION
  Report Type: 
  Country: None (occurrence: None)
  Receive Date: 20040211
  Receipt Date: 20040202
  Transmission Date: 20041129
  Serious: Yes (Other)
  Sender: FDA-Public Use
  Company Number: PHFR2004GB00865

PATIENT
  Age: 70 Year
  Sex: Female

DRUGS (6)
  1. DICLOFENAC [Suspect]
     Dosage: 75 MG/DAY
     Route: 048
     Dates: start: 20031215
  2. ETORICOXIB [Suspect]
     Indication: ARTHRITIS
     Dosage: 90 MG, QD
     Route: 048
     Dates: start: 20030706, end: 20031014
  3. CELECOXIB [Suspect]
     Indication: ARTHRITIS
     Dosage: 100 MG, QD
     Route: 048
     Dates: start: 20031014, end: 20031215
  4. CO-PROXAMOL [Concomitant]
     Dosage: 2 OT, QID
     Route: 048
  5. THYROXINE [Suspect]
     Dosage: 100 UG/DAY
     Route: 048
  6. ADCAL-D3 [Concomitant]
     Dosage: UNK, BID
     Route: 048

REACTIONS (2)
  - DRUG INTERACTION [None]
  - MYALGIA [None]
